FAERS Safety Report 6568538-9 (Version None)
Quarter: 2010Q1

REPORT INFORMATION
  Report Type: 
  Country: None (occurrence: None)
  Receive Date: 20100128
  Receipt Date: 20100121
  Transmission Date: 20100710
  Serious: Yes (Hospitalization)
  Sender: FDA-Public Use
  Company Number: 2009JP000015

PATIENT
  Age: 23 Year
  Sex: Female
  Weight: 58 kg

DRUGS (19)
  1. TACROLIMUS [Suspect]
     Indication: LUPUS NEPHRITIS
     Dosage: 3 MG, ORAL
     Route: 048
     Dates: start: 20071012, end: 20090326
  2. PREDNISOLONE [Suspect]
     Indication: LUPUS NEPHRITIS
     Dosage: SEE IMAGE
     Route: 048
     Dates: start: 20071012, end: 20080118
  3. PREDNISOLONE [Suspect]
     Indication: LUPUS NEPHRITIS
     Dosage: SEE IMAGE
     Route: 048
     Dates: start: 20080119, end: 20080229
  4. PREDNISOLONE [Suspect]
     Indication: LUPUS NEPHRITIS
     Dosage: SEE IMAGE
     Route: 048
     Dates: start: 20080301, end: 20080411
  5. PREDNISOLONE [Suspect]
     Indication: LUPUS NEPHRITIS
     Dosage: SEE IMAGE
     Route: 048
     Dates: start: 20080412, end: 20080523
  6. PREDNISOLONE [Suspect]
     Indication: LUPUS NEPHRITIS
     Dosage: SEE IMAGE
     Route: 048
     Dates: start: 20080524, end: 20080704
  7. PREDNISOLONE [Suspect]
     Indication: LUPUS NEPHRITIS
     Dosage: SEE IMAGE
     Route: 048
     Dates: start: 20080705, end: 20080815
  8. PREDNISOLONE [Suspect]
     Indication: LUPUS NEPHRITIS
     Dosage: SEE IMAGE
     Route: 048
     Dates: start: 20080816, end: 20090330
  9. PREDNISOLONE [Suspect]
     Indication: LUPUS NEPHRITIS
     Dosage: SEE IMAGE
     Route: 048
     Dates: start: 20090408, end: 20090414
  10. BEZATOL (BEZAFIBRATE) PER ORAL NOS [Concomitant]
  11. EPADEL-S (ETHYL ICOSAPENTATE) [Concomitant]
  12. RABEPRAZOLE SODIUM [Concomitant]
  13. JUVELA N (TOCOPHERYL NICOTINATE) [Concomitant]
  14. CINAL (ASCORBIC ACID) [Concomitant]
  15. VITAMEDIN (BENFOTIAMINE) CAPSULE [Concomitant]
  16. PANTOSIN (PANTHETHINE) POWDER [Concomitant]
  17. SUCRALFATE [Concomitant]
  18. LENDORM [Concomitant]
  19. MYONAL (EPERISONE HYDROCHLORIDE) [Concomitant]

REACTIONS (7)
  - GENERALISED ERYTHEMA [None]
  - HERPES SIMPLEX [None]
  - HYPOPHAGIA [None]
  - INFECTION IN AN IMMUNOCOMPROMISED HOST [None]
  - INSOMNIA [None]
  - ORAL INFECTION [None]
  - TOXIC SKIN ERUPTION [None]
